FAERS Safety Report 8769570 (Version 1)
Quarter: 2012Q4

REPORT INFORMATION
  Report Type: 
  Country: BR (occurrence: BR)
  Receive Date: 20120905
  Receipt Date: 20120905
  Transmission Date: 20130627
  Serious: Yes (Other)
  Sender: FDA-Public Use
  Company Number: PHHY2012BR076495

PATIENT
  Age: 61 Year
  Sex: Male

DRUGS (1)
  1. ONBREZ [Suspect]
     Indication: CHRONIC OBSTRUCTIVE PULMONARY DISEASE
     Dosage: 300 ug, QD
     Dates: start: 2011

REACTIONS (3)
  - Alpha-1 anti-trypsin decreased [Unknown]
  - Blood fibrinogen increased [Unknown]
  - Brain natriuretic peptide increased [Unknown]
